FAERS Safety Report 19990078 (Version 1)
Quarter: 2021Q4

REPORT INFORMATION
  Report Type: Spontaneous
  Country: US (occurrence: US)
  Receive Date: 20211023
  Receipt Date: 20211023
  Transmission Date: 20220303
  Serious: Yes (Other)
  Sender: FDA-Public Use
  Company Number: None

PATIENT
  Age: 66 Year
  Sex: Male
  Weight: 92.25 kg

DRUGS (5)
  1. MODERNA COVID-19 VACCINE [Suspect]
     Active Substance: CX-024414
     Indication: COVID-19 immunisation
     Dosage: ?          QUANTITY:2 INJECTION(S);
     Route: 030
     Dates: start: 20210304, end: 20210401
  2. PEGLOTICASE [Concomitant]
     Active Substance: PEGLOTICASE
  3. LEVOTHYROXINE [Concomitant]
     Active Substance: LEVOTHYROXINE
  4. METHOTREXATE [Concomitant]
     Active Substance: METHOTREXATE
  5. FOLIC ACID [Concomitant]
     Active Substance: FOLIC ACID

REACTIONS (8)
  - Vaccination complication [None]
  - Drug specific antibody [None]
  - Drug ineffective [None]
  - Therapy non-responder [None]
  - Treatment failure [None]
  - Vaccination complication [None]
  - Product complaint [None]
  - Product formulation issue [None]

NARRATIVE: CASE EVENT DATE: 20210401
